FAERS Safety Report 6768559-7 (Version None)
Quarter: 2010Q2

REPORT INFORMATION
  Report Type: 
  Country: None (occurrence: None)
  Receive Date: 20100614
  Receipt Date: 20100602
  Transmission Date: 20101027
  Serious: Yes (Other)
  Sender: FDA-Public Use
  Company Number: SE-PFIZER INC-2010069571

PATIENT
  Age: 73 Year
  Sex: Male

DRUGS (3)
  1. SUTENT [Suspect]
     Dosage: 50 MG, UNK
     Dates: start: 20090827, end: 20090928
  2. SUTENT [Suspect]
     Dosage: 37.5 MG, UNK
     Dates: start: 20100303
  3. PEGINTERFERON ALFA-2B [Concomitant]
     Dosage: UNK

REACTIONS (4)
  - DISEASE PROGRESSION [None]
  - GASTRIC PERFORATION [None]
  - PAIN IN EXTREMITY [None]
  - RENAL CANCER [None]
